FAERS Safety Report 11544173 (Version 1)
Quarter: 2015Q3

REPORT INFORMATION
  Report Type: Spontaneous
  Country: US (occurrence: None)
  Receive Date: 20150923
  Receipt Date: 20150923
  Transmission Date: 20151125
  Serious: Yes (Death)
  Sender: FDA-Public Use
  Company Number: None

PATIENT
  Age: 7 Year
  Sex: Male
  Weight: 23 kg

DRUGS (23)
  1. DAUNORUBICIN [Suspect]
     Active Substance: DAUNORUBICIN
     Dates: end: 20150916
  2. ETOPOSIDE (VP-16) [Suspect]
     Active Substance: ETOPOSIDE
     Dates: end: 20150917
  3. LEVETIRACETAM. [Concomitant]
     Active Substance: LEVETIRACETAM
  4. PENTOBARBITOL [Concomitant]
  5. CYTARABINE. [Suspect]
     Active Substance: CYTARABINE
     Dates: end: 20150917
  6. COTRIMOXAZOLE [Concomitant]
     Active Substance: SULFAMETHOXAZOLE\TRIMETHOPRIM
  7. SODIUM CHLORIDE. [Concomitant]
     Active Substance: SODIUM CHLORIDE
  8. ALLOPURINOL. [Concomitant]
     Active Substance: ALLOPURINOL
  9. BACITRACIN-POLYMIXIN B [Concomitant]
  10. CEFEPIME [Concomitant]
     Active Substance: CEFEPIME HYDROCHLORIDE
  11. DEXRAZOXANE. [Concomitant]
     Active Substance: DEXRAZOXANE
  12. GENTAMICIN. [Concomitant]
     Active Substance: GENTAMICIN
  13. MANNITOL. [Concomitant]
     Active Substance: MANNITOL
  14. LORAZEPAM. [Concomitant]
     Active Substance: LORAZEPAM
  15. DEXAMETHASONE. [Concomitant]
     Active Substance: DEXAMETHASONE
  16. DEXTROSE. [Concomitant]
     Active Substance: DEXTROSE
  17. EPINEPHRINE. [Concomitant]
     Active Substance: EPINEPHRINE
  18. FENTANYL. [Concomitant]
     Active Substance: FENTANYL
  19. HEPARIN [Concomitant]
     Active Substance: HEPARIN SODIUM
  20. ONDANSETRON [Concomitant]
     Active Substance: ONDANSETRON
  21. PANTOPRAZOLE [Concomitant]
     Active Substance: PANTOPRAZOLE SODIUM
  22. THROMBIN [Concomitant]
     Active Substance: THROMBIN
  23. VECURONIUM [Concomitant]
     Active Substance: VECURONIUM BROMIDE

REACTIONS (3)
  - Intracranial pressure increased [None]
  - Neurological decompensation [None]
  - Brain herniation [None]

NARRATIVE: CASE EVENT DATE: 20150916
